FAERS Safety Report 6107380-X (Version None)
Quarter: 2009Q1

REPORT INFORMATION
  Report Type: 
  Country: None (occurrence: None)
  Receive Date: 20090309
  Receipt Date: 20090305
  Transmission Date: 20090719
  Serious: Yes (Hospitalization)
  Sender: FDA-Public Use
  Company Number: US-BRISTOL-MYERS SQUIBB COMPANY-14531651

PATIENT
  Age: 67 Year
  Sex: Female
  Weight: 85 kg

DRUGS (12)
  1. CETUXIMAB [Suspect]
     Indication: NON-SMALL CELL LUNG CANCER
     Dosage: INITIATED ON 29JAN09; RECEIVED 3 WEEKLY TREATMENTS
     Route: 042
     Dates: start: 20090212, end: 20090212
  2. LIPITOR [Concomitant]
  3. ISOSORBIDE MONONITRATE [Concomitant]
  4. TOPROL-XL [Concomitant]
  5. ASPIRIN [Concomitant]
  6. VENTOLIN [Concomitant]
  7. OXYBUTYNIN CHLORIDE [Concomitant]
  8. NEXIUM [Concomitant]
  9. GLYBURIDE [Concomitant]
  10. FOLIC ACID [Concomitant]
  11. VITAMIN B-12 [Concomitant]
  12. CALCIUM + VITAMIN D [Concomitant]

REACTIONS (2)
  - ANGINA PECTORIS [None]
  - PNEUMONIA [None]
